FAERS Safety Report 8522670 (Version 3)
Quarter: 2012Q4

REPORT INFORMATION
  Report Type: 
  Country: US (occurrence: US)
  Receive Date: 20120419
  Receipt Date: 20121005
  Transmission Date: 20130627
  Serious: Yes (Hospitalization)
  Sender: FDA-Public Use
  Company Number: US-GLAXOSMITHKLINE-A0974124A

PATIENT
  Age: 47 Year
  Sex: Female
  Weight: 105 kg

DRUGS (3)
  1. FLOLAN [Suspect]
     Indication: PULMONARY ARTERIAL HYPERTENSION
     Dosage: 10NGKM See dosage text
     Route: 042
     Dates: start: 20080930
  2. FLOLAN [Suspect]
     Indication: PRODUCT USED FOR UNKNOWN INDICATION
     Route: 042
  3. REVATIO [Concomitant]
     Dosage: 20MG Three times per day
     Route: 048

REACTIONS (1)
  - Medical device complication [Recovered/Resolved]
